FAERS Safety Report 5757413-5 (Version None)
Quarter: 2008Q2

REPORT INFORMATION
  Report Type: 
  Country: None (occurrence: None)
  Receive Date: 20080529
  Receipt Date: 20080512
  Transmission Date: 20081010
  Serious: Yes (Other)
  Sender: FDA-Public Use
  Company Number: S07-UKI-02255-01

PATIENT
  Age: 28 Year
  Sex: Female

DRUGS (1)
  1. CITALOPRAM HYDROBROMIDE [Suspect]
     Dosage: 20 MG QD PO
     Route: 048
     Dates: start: 20070323, end: 20070328

REACTIONS (3)
  - COAGULOPATHY [None]
  - INCREASED TENDENCY TO BRUISE [None]
  - RASH PRURITIC [None]
